FAERS Safety Report 8175905-9 (Version None)
Quarter: 2012Q1

REPORT INFORMATION
  Report Type: 
  Country: None (occurrence: None)
  Receive Date: 20120301
  Receipt Date: 20120217
  Transmission Date: 20120608
  Serious: Yes (Life-Threatening, Hospitalization, Other)
  Sender: FDA-Public Use
  Company Number: DE-RANBAXY-2012RR-52877

PATIENT
  Age: 71 Year
  Sex: Male
  Weight: 53 kg

DRUGS (10)
  1. RAMIPRIL PLUS [Concomitant]
     Indication: HYPERTENSION
     Dosage: 1 DF, QD
     Route: 048
     Dates: start: 20110214, end: 20110317
  2. IBUPROFEN [Suspect]
     Indication: PAIN
     Dosage: 600 MG, BID
     Route: 048
     Dates: start: 20101213, end: 20110123
  3. NOVALGIN SANOFI- AVENTIS [Suspect]
     Indication: PAIN
     Dosage: 1000 MG 4/WEEK
     Route: 048
     Dates: start: 20101213, end: 20110301
  4. ASPIRIN [Concomitant]
     Indication: PRODUCT USED FOR UNKNOWN INDICATION
     Dosage: 100 MG, QD
     Route: 048
     Dates: start: 20110214
  5. IBUPROFEN [Suspect]
     Dosage: 600 MG, TID
     Route: 048
     Dates: start: 20110124, end: 20110214
  6. SIMVASTATIN [Concomitant]
     Indication: PRODUCT USED FOR UNKNOWN INDICATION
     Dosage: 40 MG, QD
     Route: 048
     Dates: start: 20110214
  7. IBUPROFEN [Suspect]
     Indication: PAIN
     Dosage: 200 MG, 1/WEEK
     Route: 048
     Dates: start: 20110215, end: 20110318
  8. CLINDAMYCIN [Suspect]
     Indication: EXTREMITY NECROSIS
     Dosage: 600 MG, QD
     Route: 065
     Dates: start: 20110125, end: 20110213
  9. OMEP HEXAL [Concomitant]
     Indication: PRODUCT USED FOR UNKNOWN INDICATION
     Dosage: 20 MG, 1/WEEK
     Route: 048
     Dates: start: 20101213
  10. RAMIPRIL [Concomitant]
     Indication: PRODUCT USED FOR UNKNOWN INDICATION
     Dosage: 5 MG, 1/WEEK
     Route: 048
     Dates: start: 20101213

REACTIONS (1)
  - RENAL FAILURE ACUTE [None]
